FAERS Safety Report 25691486 (Version 1)
Quarter: 2025Q3

REPORT INFORMATION
  Report Type: Spontaneous
  Country: JP (occurrence: JP)
  Receive Date: 20250818
  Receipt Date: 20250818
  Transmission Date: 20251021
  Serious: Yes (Other)
  Sender: UCB
  Company Number: JP-UCBJ-CD202510728UCBPHAPROD

PATIENT

DRUGS (7)
  1. FINTEPLA [Suspect]
     Active Substance: FENFLURAMINE
     Indication: Infantile spasms
     Route: 048
  2. FINTEPLA [Suspect]
     Active Substance: FENFLURAMINE
     Indication: Off label use
  3. VIMPAT [Concomitant]
     Active Substance: LACOSAMIDE
     Indication: Infantile spasms
     Route: 048
  4. TOPIRAMATE [Concomitant]
     Active Substance: TOPIRAMATE
     Indication: Infantile spasms
  5. VALPROATE SODIUM [Concomitant]
     Active Substance: VALPROATE SODIUM
     Indication: Infantile spasms
  6. RUFINAMIDE [Concomitant]
     Active Substance: RUFINAMIDE
     Indication: Infantile spasms
  7. PHENOBARBITAL [Concomitant]
     Active Substance: PHENOBARBITAL
     Indication: Infantile spasms

REACTIONS (4)
  - Septic shock [Unknown]
  - Disseminated intravascular coagulation [Unknown]
  - Intestinal ischaemia [Unknown]
  - Off label use [Unknown]
